FAERS Safety Report 9526208 (Version 2)
Quarter: 2013Q4

REPORT INFORMATION
  Report Type: Spontaneous
  Country: DE (occurrence: DE)
  Receive Date: 20130916
  Receipt Date: 20131113
  Transmission Date: 20140711
  Serious: Yes (Life-Threatening, Hospitalization, Other)
  Sender: FDA-Public Use
  Company Number: DE-PFIZER INC-2013260890

PATIENT
  Age: 64 Year
  Sex: Female
  Weight: 97 kg

DRUGS (1)
  1. INLYTA [Suspect]
     Indication: RENAL CELL CARCINOMA
     Dosage: 5 MG, 2X/DAY
     Dates: start: 20130805, end: 20130820

REACTIONS (4)
  - Serratia sepsis [Not Recovered/Not Resolved]
  - Renal failure acute [Not Recovered/Not Resolved]
  - Candida infection [Unknown]
  - Subileus [Unknown]
